FAERS Safety Report 7353124-3 (Version None)
Quarter: 2011Q1

REPORT INFORMATION
  Report Type: 
  Country: None (occurrence: None)
  Receive Date: 20110315
  Receipt Date: 20110301
  Transmission Date: 20110831
  Serious: Yes (Other)
  Sender: FDA-Public Use
  Company Number: RS-ELI_LILLY_AND_COMPANY-RS201103001449

PATIENT
  Sex: Female
  Weight: 62 kg

DRUGS (2)
  1. GEMZAR [Suspect]
     Dosage: 1660 MG, WEEKLY (1/W)
     Route: 042
     Dates: end: 20110217
  2. GEMZAR [Suspect]
     Indication: PANCREATIC NEOPLASM
     Dosage: 1660 MG, WEEKLY (1/W)
     Route: 042
     Dates: end: 20101227

REACTIONS (1)
  - CYSTITIS HAEMORRHAGIC [None]
